FAERS Safety Report 8196537-2 (Version None)
Quarter: 2012Q1

REPORT INFORMATION
  Report Type: 
  Country: None (occurrence: None)
  Receive Date: 20120309
  Receipt Date: 20120229
  Transmission Date: 20120608
  Serious: Yes (Other)
  Sender: FDA-Public Use
  Company Number: ES-BRISTOL-MYERS SQUIBB COMPANY-16424103

PATIENT
  Age: 37 Year
  Sex: Female

DRUGS (4)
  1. LEVOTHYROXINE SODIUM [Concomitant]
  2. ABILIFY [Suspect]
     Dates: start: 20120201, end: 20120101
  3. LORAZEPAM [Concomitant]
  4. LORAZEPAM [Concomitant]

REACTIONS (6)
  - CARDIAC DISCOMFORT [None]
  - MENSTRUATION DELAYED [None]
  - NAUSEA [None]
  - VOMITING [None]
  - PYREXIA [None]
  - MUSCLE CONTRACTURE [None]
